FAERS Safety Report 6696437-0 (Version None)
Quarter: 2010Q2

REPORT INFORMATION
  Report Type: 
  Country: None (occurrence: None)
  Receive Date: 20100426
  Receipt Date: 20100419
  Transmission Date: 20101027
  Serious: Yes (Death)
  Sender: FDA-Public Use
  Company Number: DE-JNJFOC-20100401766

PATIENT
  Age: 9 Decade
  Sex: Male

DRUGS (2)
  1. REOPRO [Suspect]
     Indication: ACUTE MYOCARDIAL INFARCTION
     Route: 022
  2. REOPRO [Suspect]
     Dosage: INFUSION OVER  12 HOURS 1 MINUTE
     Route: 042

REACTIONS (3)
  - INCORRECT ROUTE OF DRUG ADMINISTRATION [None]
  - MULTI-ORGAN FAILURE [None]
  - SYSTEMIC INFLAMMATORY RESPONSE SYNDROME [None]
